FAERS Safety Report 7685457-5 (Version None)
Quarter: 2011Q3

REPORT INFORMATION
  Report Type: 
  Country: None (occurrence: None)
  Receive Date: 20110816
  Receipt Date: 20110119
  Transmission Date: 20111222
  Serious: No
  Sender: FDA-Public Use
  Company Number: US-BRISTOL-MYERS SQUIBB COMPANY-15497787

PATIENT
  Age: 52 Year
  Sex: Female

DRUGS (3)
  1. HYZAAR [Concomitant]
  2. GLUCOVANCE [Suspect]
     Dosage: DRUG TAKEN FOR TEN DAYS
     Dates: start: 20110101
  3. ULTRAM [Concomitant]

REACTIONS (1)
  - DRUG INEFFECTIVE [None]
